FAERS Safety Report 21032649 (Version 4)
Quarter: 2022Q3

REPORT INFORMATION
  Report Type: Spontaneous
  Country: CN (occurrence: CN)
  Receive Date: 20220701
  Receipt Date: 20220823
  Transmission Date: 20221027
  Serious: Yes (Other)
  Sender: FDA-Public Use
  Company Number: CN-NOVARTISPH-NVSC2022CN148907

PATIENT
  Age: 49 Year
  Sex: Female
  Weight: 51.5 kg

DRUGS (3)
  1. GLIVEC [Suspect]
     Active Substance: IMATINIB MESYLATE
     Indication: Gastrointestinal stromal tumour
     Dosage: 400 MG, QD
     Route: 048
     Dates: start: 20220609, end: 20220622
  2. GLIVEC [Suspect]
     Active Substance: IMATINIB MESYLATE
     Dosage: 300 MG, QD
     Route: 048
     Dates: start: 20220630
  3. LEUCOGEN [Concomitant]
     Active Substance: LEUCOGEN
     Indication: Product used for unknown indication
     Dosage: UNK
     Route: 048
     Dates: start: 20220607, end: 20220627

REACTIONS (22)
  - Appendicitis [Unknown]
  - Back pain [Unknown]
  - C-reactive protein increased [Unknown]
  - Adenomyosis [Unknown]
  - Pain in extremity [Recovering/Resolving]
  - Eosinophil count increased [Unknown]
  - Gamma-glutamyltransferase increased [Unknown]
  - Face oedema [Recovering/Resolving]
  - Rash [Unknown]
  - Dyspnoea [Recovered/Resolved]
  - Cough [Recovered/Resolved]
  - Mouth ulceration [Unknown]
  - Nausea [Recovering/Resolving]
  - Dizziness [Unknown]
  - Myalgia [Unknown]
  - White blood cell count decreased [Unknown]
  - Neutrophil count decreased [Unknown]
  - Headache [Unknown]
  - Muscular weakness [Unknown]
  - Blood uric acid increased [Unknown]
  - Alanine aminotransferase increased [Unknown]
  - Aspartate aminotransferase increased [Unknown]

NARRATIVE: CASE EVENT DATE: 20220621
